FAERS Safety Report 20933892 (Version 1)
Quarter: 2022Q2

REPORT INFORMATION
  Report Type: Spontaneous
  Country: US (occurrence: US)
  Receive Date: 20220608
  Receipt Date: 20220608
  Transmission Date: 20220721
  Serious: No
  Sender: FDA-Public Use
  Company Number: US-PFIZER INC-202200802500

PATIENT
  Sex: Female

DRUGS (1)
  1. PAXLOVID [Suspect]
     Active Substance: NIRMATRELVIR\RITONAVIR
     Indication: COVID-19 treatment
     Dosage: UNK (TOOK THE 3 PILLS)

REACTIONS (6)
  - Feeling hot [Unknown]
  - Cardiac disorder [Unknown]
  - Yellow skin [Unknown]
  - Ocular icterus [Unknown]
  - Asthenia [Unknown]
  - Chest discomfort [Unknown]
